FAERS Safety Report 18819862 (Version 1)
Quarter: 2021Q1

REPORT INFORMATION
  Report Type: Spontaneous
  Country: TR (occurrence: TR)
  Receive Date: 20210202
  Receipt Date: 20210202
  Transmission Date: 20210419
  Serious: Yes (Hospitalization)
  Sender: FDA-Public Use
  Company Number: TR-UCBSA-2021003490

PATIENT
  Age: 1 Year
  Sex: Male
  Weight: 8 kg

DRUGS (2)
  1. KEPPRA [Suspect]
     Active Substance: LEVETIRACETAM
     Indication: VOMITING
     Dosage: 100 MG
     Route: 048
  2. KEPPRA [Suspect]
     Active Substance: LEVETIRACETAM
     Indication: MUSCLE CONTRACTURE
     Dosage: INCREASED DOSE
     Route: 048

REACTIONS (7)
  - Decreased appetite [Unknown]
  - Product use in unapproved indication [Unknown]
  - Urine output decreased [Unknown]
  - Vomiting [Unknown]
  - Muscle contracture [Unknown]
  - Irritability [Unknown]
  - Fatigue [Unknown]

NARRATIVE: CASE EVENT DATE: 20210102
